FAERS Safety Report 4867759-0 (Version None)
Quarter: 2005Q4

REPORT INFORMATION
  Report Type: 
  Country: None (occurrence: None)
  Receive Date: 20051227
  Receipt Date: 20051227
  Transmission Date: 20060501
  Serious: Yes (Hospitalization)
  Sender: FDA-Public Use
  Company Number: None

PATIENT
  Age: 53 Year
  Sex: Male

DRUGS (4)
  1. DILANTIN [Suspect]
     Indication: CONVULSION
     Dosage: 200 MG PO BID
     Route: 048
  2. PROTONIX [Concomitant]
  3. ZIFRAB [Concomitant]
  4. TYLENOL [Concomitant]

REACTIONS (3)
  - DRUG LEVEL ABOVE THERAPEUTIC [None]
  - HYPOTENSION [None]
  - MENTAL STATUS CHANGES [None]
